FAERS Safety Report 11861902 (Version 1)
Quarter: 2015Q4

REPORT INFORMATION
  Report Type: Spontaneous
  Country: US (occurrence: US)
  Receive Date: 20151222
  Receipt Date: 20151222
  Transmission Date: 20160305
  Serious: No
  Sender: FDA-Public Use
  Company Number: US-ROCHE-1096538

PATIENT
  Sex: Male

DRUGS (3)
  1. PEGASYS [Suspect]
     Active Substance: PEGINTERFERON ALFA-2A
     Indication: PRODUCT USED FOR UNKNOWN INDICATION
     Route: 065
     Dates: start: 20120505
  2. INCIVEK [Suspect]
     Active Substance: TELAPREVIR
     Indication: PRODUCT USED FOR UNKNOWN INDICATION
     Route: 065
     Dates: start: 20120505, end: 20120728
  3. RIBASPHERE RIBAPAK [Suspect]
     Active Substance: RIBAVIRIN
     Indication: PRODUCT USED FOR UNKNOWN INDICATION
     Route: 065
     Dates: start: 20120505

REACTIONS (10)
  - Anal pruritus [Unknown]
  - Pruritus [Unknown]
  - Anorectal discomfort [Unknown]
  - Agitation [Unknown]
  - Weight decreased [Unknown]
  - Irritability [Unknown]
  - Anxiety [Unknown]
  - Pruritus generalised [Unknown]
  - Depression [Unknown]
  - Diarrhoea [Unknown]
